FAERS Safety Report 10023791 (Version 1)
Quarter: 2014Q1

REPORT INFORMATION
  Report Type: Spontaneous
  Country: AU (occurrence: None)
  Receive Date: 20140115
  Receipt Date: 20140115
  Transmission Date: 20141002
  Serious: Yes (Other)
  Sender: FDA-Public Use
  Company Number: AU-ALKEM-000459

PATIENT
  Age: 42 Year
  Sex: Female

DRUGS (2)
  1. MYCOPHENOLATE MOFETIL [Suspect]
     Indication: IMMUNOSUPPRESSION
     Dates: start: 20131203
  2. IMMUNOGLOBULIN [Concomitant]

REACTIONS (4)
  - Pain in extremity [None]
  - Paraesthesia oral [None]
  - Chronic inflammatory demyelinating polyradiculoneuropathy [None]
  - Condition aggravated [None]
